FAERS Safety Report 5576327-7 (Version None)
Quarter: 2007Q4

REPORT INFORMATION
  Report Type: 
  Country: None (occurrence: None)
  Receive Date: 20071228
  Receipt Date: 20071223
  Transmission Date: 20080405
  Serious: Yes (Hospitalization, Other)
  Sender: FDA-Public Use
  Company Number: GB-ROCHE-538613

PATIENT
  Age: 57 Year
  Sex: Female
  Weight: 84.8 kg

DRUGS (7)
  1. ORLISTAT [Suspect]
     Indication: OBESITY
     Dosage: DOSAGE REGIMEN REPORTED AS 120 MG WHEN NEEDED.
     Route: 048
     Dates: start: 20071012
  2. QUETAPINE FUMARATE [Concomitant]
     Indication: BIPOLAR DISORDER
     Route: 048
  3. QUETAPINE FUMARATE [Concomitant]
     Route: 048
     Dates: start: 20071001
  4. SIMVASTATIN [Concomitant]
     Route: 048
     Dates: start: 20060101
  5. FLIXONASE [Concomitant]
     Dosage: ROUTE: NASAL SPRAY. TAKEN WHEN NEEDED.
     Route: 050
  6. IRON TABLETS [Concomitant]
     Indication: ANAEMIA
     Route: 048
  7. GLUCOSAMINE [Concomitant]
     Route: 048

REACTIONS (2)
  - HYPOTHYROIDISM [None]
  - MENTAL DISORDER [None]
